FAERS Safety Report 16751033 (Version 1)
Quarter: 2019Q3

REPORT INFORMATION
  Report Type: Spontaneous
  Country: JP (occurrence: JP)
  Receive Date: 20190828
  Receipt Date: 20190828
  Transmission Date: 20191005
  Serious: Yes (Hospitalization)
  Sender: FDA-Public Use
  Company Number: JP-ACTELION-A-CH2019-194645

PATIENT
  Age: 17 Year
  Sex: Male
  Weight: 44.1 kg

DRUGS (2)
  1. EPOPROSTENOL SODIUM. [Suspect]
     Active Substance: EPOPROSTENOL SODIUM
     Indication: PULMONARY ARTERIAL HYPERTENSION
     Dosage: 42.7 NG/KG, PER MIN
     Route: 042
  2. BOSENTAN. [Suspect]
     Active Substance: BOSENTAN
     Indication: PULMONARY ARTERIAL HYPERTENSION
     Dosage: 62.5 MG, QD
     Route: 048

REACTIONS (17)
  - Breath sounds abnormal [Recovered/Resolved]
  - Right ventricular systolic pressure increased [Recovered/Resolved]
  - Blood thyroid stimulating hormone decreased [Recovered/Resolved]
  - Cardiac murmur [Unknown]
  - Condition aggravated [Recovered/Resolved]
  - Tricuspid valve incompetence [Unknown]
  - Cardiomegaly [Unknown]
  - Anti-thyroid antibody positive [Recovered/Resolved]
  - Pulmonary arterial hypertension [Recovered/Resolved]
  - Chest pain [Recovered/Resolved]
  - Toxic goitre [Recovered/Resolved]
  - Liver palpable [Unknown]
  - Fatigue [Recovered/Resolved]
  - Brain natriuretic peptide increased [Recovered/Resolved]
  - Concomitant disease aggravated [Unknown]
  - Thyroxine free increased [Recovered/Resolved]
  - Dyspnoea [Recovered/Resolved]
